FAERS Safety Report 20811045 (Version 2)
Quarter: 2022Q2

REPORT INFORMATION
  Report Type: Report from Study
  Country: IL (occurrence: IL)
  Receive Date: 20220510
  Receipt Date: 20220513
  Transmission Date: 20220721
  Serious: Yes (Death)
  Sender: FDA-Public Use
  Company Number: IT-NOVARTISPH-NVSC2022IL107158

PATIENT
  Age: 72 Year
  Sex: Male

DRUGS (1)
  1. CAPMATINIB [Suspect]
     Active Substance: CAPMATINIB
     Indication: Non-small cell lung cancer
     Dosage: 800 MG
     Route: 048
     Dates: start: 20211028, end: 202202

REACTIONS (2)
  - Death [Fatal]
  - COVID-19 [Recovered/Resolved]

NARRATIVE: CASE EVENT DATE: 20220227
